FAERS Safety Report 25463648 (Version 1)
Quarter: 2025Q2

REPORT INFORMATION
  Report Type: Spontaneous
  Country: US (occurrence: US)
  Receive Date: 20250620
  Receipt Date: 20250620
  Transmission Date: 20250716
  Serious: Yes (Other)
  Sender: GENMAB
  Company Number: US-GENMAB-2025-01744

PATIENT

DRUGS (1)
  1. EPCORITAMAB [Suspect]
     Active Substance: EPCORITAMAB
     Route: 065

REACTIONS (2)
  - Metastases to thyroid [Unknown]
  - Graves^ disease [Unknown]
